FAERS Safety Report 7421111-2 (Version None)
Quarter: 2011Q2

REPORT INFORMATION
  Report Type: 
  Country: None (occurrence: None)
  Receive Date: 20110418
  Receipt Date: 20110408
  Transmission Date: 20111010
  Serious: Yes (Hospitalization, Other)
  Sender: FDA-Public Use
  Company Number: DE-ELI_LILLY_AND_COMPANY-DE201101005130

PATIENT
  Sex: Male

DRUGS (11)
  1. CONCOR [Concomitant]
     Dosage: 5 MG, QD
  2. AMLODIPINE BESYLATE [Concomitant]
     Dosage: 5 MG, BID
     Route: 065
  3. DELIX [Concomitant]
     Dosage: 5 MG, QD
     Route: 065
  4. METFORMIN [Concomitant]
     Dosage: 850 MG, BID
  5. TORSEMIDE [Concomitant]
     Dosage: UNK, UNKNOWN
     Route: 065
  6. ALDACTONE [Concomitant]
     Dosage: 25 MG, QD
     Route: 065
  7. PANTOPRAZOLE [Concomitant]
     Dosage: UNK, UNKNOWN
     Route: 065
  8. SPIRIVA [Concomitant]
     Dosage: 18 UG, QD
     Dates: start: 20101001
  9. LEVOFLOXACIN [Concomitant]
     Indication: LEUKOPENIA
  10. SYMBICORT [Concomitant]
     Dosage: 320/9 UNK, BID
     Route: 065
  11. GEMZAR [Suspect]
     Indication: PANCREATIC CARCINOMA
     Dosage: UNK
     Dates: start: 20101001, end: 20110301

REACTIONS (7)
  - CAPILLARY LEAK SYNDROME [None]
  - DYSPNOEA [None]
  - GENERAL PHYSICAL CONDITION ABNORMAL [None]
  - OEDEMA PERIPHERAL [None]
  - CONDITION AGGRAVATED [None]
  - WEIGHT DECREASED [None]
  - PULMONARY TOXICITY [None]
